FAERS Safety Report 6495652-9 (Version None)
Quarter: 2009Q4

REPORT INFORMATION
  Report Type: 
  Country: None (occurrence: None)
  Receive Date: 20091214
  Receipt Date: 20090728
  Transmission Date: 20100525
  Serious: No
  Sender: FDA-Public Use
  Company Number: US-BRISTOL-MYERS SQUIBB COMPANY-14719611

PATIENT
  Age: 35 Year
  Sex: Female
  Weight: 99 kg

DRUGS (10)
  1. ABILIFY [Suspect]
     Dosage: USED HIGH AS 30MG; CURRENTLY USING 10MG, USUALLY ONLY TAKES 5MG;STARTED IN 20002 OR 2003
  2. LYRICA [Concomitant]
     Dosage: STARTED 1 MONTH AGO
     Dates: start: 20090101
  3. SOTALOL HCL [Concomitant]
  4. ETODOLAC [Concomitant]
  5. KLONOPIN [Concomitant]
  6. ALLEGRA [Concomitant]
  7. FLORINEF [Concomitant]
  8. DIGOXIN [Concomitant]
  9. LOESTRIN FE 1/20 [Concomitant]
     Dosage: LOESTRIN 24 FE
  10. PATANOL [Concomitant]
     Dosage: PATANOL EYE DROPS

REACTIONS (2)
  - EYE ROLLING [None]
  - VISUAL IMPAIRMENT [None]
